FAERS Safety Report 7300953-8 (Version None)
Quarter: 2010Q4

REPORT INFORMATION
  Report Type: 
  Country: None (occurrence: None)
  Receive Date: 20101230
  Receipt Date: 20100212
  Transmission Date: 20110411
  Serious: Yes (Hospitalization, Other)
  Sender: FDA-Public Use
  Company Number: 20100056

PATIENT
  Age: 38 Year
  Sex: Female
  Weight: 92.4 kg

DRUGS (1)
  1. VENOFER [Suspect]
     Indication: RENAL FAILURE CHRONIC
     Dosage: 50 MG INTRAVENOUS
     Route: 042
     Dates: start: 20100210, end: 20100210

REACTIONS (3)
  - CHEST PAIN [None]
  - FLUSHING [None]
  - PYREXIA [None]
